FAERS Safety Report 7088973-2 (Version None)
Quarter: 2010Q4

REPORT INFORMATION
  Report Type: 
  Country: None (occurrence: None)
  Receive Date: 20101108
  Receipt Date: 20101103
  Transmission Date: 20110411
  Serious: Yes (Other)
  Sender: FDA-Public Use
  Company Number: BR-PFIZER INC-2010135329

PATIENT
  Sex: Female

DRUGS (3)
  1. OXYTETRACYCLINE HCL, POLYMYXIN B SULFATE [Suspect]
     Indication: IRIS INJURY
     Dosage: UNK
     Route: 047
     Dates: start: 20101023
  2. OXYTETRACYCLINE HCL, POLYMYXIN B SULFATE [Suspect]
     Indication: EYE IRRITATION
  3. OXYTETRACYCLINE HCL, POLYMYXIN B SULFATE [Suspect]
     Indication: EYE INFECTION BACTERIAL

REACTIONS (1)
  - EYE INFECTION BACTERIAL [None]
